FAERS Safety Report 9684037 (Version 1)
Quarter: 2013Q4

REPORT INFORMATION
  Report Type: Spontaneous
  Country: AT (occurrence: AT)
  Receive Date: 20131112
  Receipt Date: 20131112
  Transmission Date: 20140711
  Serious: Yes (Hospitalization, Other)
  Sender: FDA-Public Use
  Company Number: AT-UCBSA-102681

PATIENT
  Sex: Female

DRUGS (6)
  1. LACOSAMIDE [Suspect]
     Indication: GRAND MAL CONVULSION
     Dosage: 100 MG/DAY
     Route: 048
     Dates: start: 2010
  2. LACOSAMIDE [Suspect]
     Indication: GRAND MAL CONVULSION
     Dosage: 50 MG/DAY
     Route: 048
  3. LACOSAMIDE [Suspect]
     Indication: STATUS EPILEPTICUS
     Dosage: 200 MG
     Route: 042
  4. LAMICTAL [Concomitant]
     Indication: TERATOMA
     Dosage: UNKNOWN DOSE
  5. LAMICTAL [Concomitant]
     Indication: GRAND MAL CONVULSION
     Dosage: UNKNOWN DOSE
  6. DIAZEPAM [Concomitant]
     Indication: STATUS EPILEPTICUS
     Dosage: UNKNOWN DOSE

REACTIONS (2)
  - Status epilepticus [Recovered/Resolved]
  - Teratoma [Unknown]
